APPROVED DRUG PRODUCT: DIPHENHYDRAMINE HYDROCHLORIDE
Active Ingredient: DIPHENHYDRAMINE HYDROCHLORIDE
Strength: 50MG/ML
Dosage Form/Route: INJECTABLE;INJECTION
Application: A040498 | Product #001 | TE Code: AP
Applicant: PHARMOBEDIENT CONSULTING LLC
Approved: Jul 12, 2005 | RLD: No | RS: Yes | Type: RX